FAERS Safety Report 8374931 (Version 2)
Quarter: 2013Q1

REPORT INFORMATION
  Report Type: Report from Study
  Country: US (occurrence: US)
  Receive Date: 20120129
  Receipt Date: 20130129
  Transmission Date: 20140127
  Serious: No
  Sender: FDA-Public Use
  Company Number: US-ABBOTT-11P-163-0882626-00

PATIENT
  Age: 70 Year
  Sex: Female

DRUGS (10)
  1. HUMIRA 40 MG/0.8 ML PEN [Suspect]
     Indication: CROHN^S DISEASE
     Dosage: (160 MG, LOADING DOSE)
     Dates: start: 20111209, end: 20111209
  2. HUMIRA 40 MG/0.8 ML PEN [Suspect]
     Dosage: (80 MG, SECOND LOADING DOSE)
     Dates: start: 20111223, end: 20111223
  3. HUMIRA 40 MG/0.8 ML PEN [Suspect]
  4. PERCOCET [Concomitant]
     Indication: PAIN
     Dosage: 5/325MG : Q 6HOURS PRN
  5. AMBIEN [Concomitant]
     Indication: INSOMNIA
  6. XALATAN [Concomitant]
     Indication: PRODUCT USED FOR UNKNOWN INDICATION
     Dosage: 1 DROP BOTH EYES AT BEDTIME
  7. CHILDREN^S CHEWABLE VITAMIN [Concomitant]
     Indication: PRODUCT USED FOR UNKNOWN INDICATION
  8. CALCIUM [Concomitant]
     Indication: PRODUCT USED FOR UNKNOWN INDICATION
     Dosage: 3 QD
  9. VIVELLE DOT [Concomitant]
     Indication: PRODUCT USED FOR UNKNOWN INDICATION
     Dosage: ESTROGEN PATCH 0.1: 2 PATCHES PER WEEK
  10. VITAMIN B12 [Concomitant]
     Indication: PRODUCT USED FOR UNKNOWN INDICATION

REACTIONS (8)
  - Injection site pain [Recovered/Resolved]
  - Injection site pain [Recovering/Resolving]
  - Device malfunction [Recovering/Resolving]
  - Diarrhoea [Not Recovered/Not Resolved]
  - Nausea [Not Recovered/Not Resolved]
  - Drug ineffective [Unknown]
  - Dysgeusia [Recovered/Resolved]
  - Injection site pain [Recovered/Resolved]
